FAERS Safety Report 5534459-3 (Version None)
Quarter: 2007Q4

REPORT INFORMATION
  Report Type: 
  Country: None (occurrence: None)
  Receive Date: 20071205
  Receipt Date: 20071129
  Transmission Date: 20080405
  Serious: Yes (Other)
  Sender: FDA-Public Use
  Company Number: B0498238A

PATIENT
  Age: 50 Year
  Sex: Male

DRUGS (8)
  1. BECLOMETHASONE DIPROPIONATE [Suspect]
     Indication: ASTHMA
     Route: 055
  2. BUDESONIDE [Suspect]
     Indication: ASTHMA
     Dosage: 200MCG TWICE PER DAY
     Route: 055
  3. FLUTICASONE PROPIONATE [Suspect]
     Indication: ASTHMA
     Dosage: 50MCG TWICE PER DAY
     Route: 055
  4. TADALAFIL [Concomitant]
  5. CHOLESTEROL [Concomitant]
  6. TRIGLYCERIDES [Concomitant]
  7. STATINS [Concomitant]
     Route: 048
  8. ALBUTEROL [Concomitant]
     Route: 055

REACTIONS (2)
  - PALPITATIONS [None]
  - TACHYCARDIA [None]
